FAERS Safety Report 12258352 (Version 2)
Quarter: 2016Q2

REPORT INFORMATION
  Report Type: Spontaneous
  Country: US (occurrence: US)
  Receive Date: 20160412
  Receipt Date: 20160511
  Transmission Date: 20160815
  Serious: Yes (Other)
  Sender: FDA-Public Use
  Company Number: US-009507513-1604USA003509

PATIENT
  Age: 51 Year
  Sex: Male
  Weight: 62.59 kg

DRUGS (1)
  1. KEYTRUDA [Suspect]
     Active Substance: PEMBROLIZUMAB
     Indication: GASTROOESOPHAGEAL CANCER
     Dosage: UNK, Q3W
     Route: 042
     Dates: start: 20160115, end: 20160317

REACTIONS (3)
  - Drug ineffective for unapproved indication [Unknown]
  - Malignant neoplasm progression [Unknown]
  - Product use issue [Unknown]

NARRATIVE: CASE EVENT DATE: 2016
